FAERS Safety Report 4657884-1 (Version None)
Quarter: 2005Q2

REPORT INFORMATION
  Report Type: 
  Country: None (occurrence: None)
  Receive Date: 20050510
  Receipt Date: 20050429
  Transmission Date: 20051028
  Serious: Yes (Other)
  Sender: FDA-Public Use
  Company Number: PHHO2005CA06973

PATIENT
  Age: 38 Year
  Sex: Female

DRUGS (1)
  1. CLOZARIL [Suspect]
     Route: 048
     Dates: start: 20030114, end: 20050126

REACTIONS (4)
  - CHOKING [None]
  - OBESITY [None]
  - SALIVARY HYPERSECRETION [None]
  - SLEEP APNOEA SYNDROME [None]
